FAERS Safety Report 5473013-9 (Version None)
Quarter: 2007Q4

REPORT INFORMATION
  Report Type: 
  Country: None (occurrence: None)
  Receive Date: 20071001
  Receipt Date: 20070226
  Transmission Date: 20080405
  Serious: No
  Sender: FDA-Public Use
  Company Number: US-ASTRAZENECA-2007UW03630

PATIENT
  Age: 76 Year
  Sex: Female
  Weight: 63.5 kg

DRUGS (5)
  1. ARIMIDEX [Suspect]
     Indication: BREAST CANCER FEMALE
     Route: 048
  2. RADIATION [Concomitant]
  3. ATENOLOL [Concomitant]
     Route: 048
  4. FOLIC ACID [Concomitant]
  5. MULTI-VITAL [Concomitant]

REACTIONS (5)
  - CEPHALO-PELVIC DISPROPORTION [None]
  - GASTROINTESTINAL DISORDER [None]
  - INSOMNIA [None]
  - INTESTINAL HAEMORRHAGE [None]
  - MUSCLE SPASMS [None]
